FAERS Safety Report 9325190 (Version 4)
Quarter: 2013Q3

REPORT INFORMATION
  Report Type: Spontaneous
  Country: US (occurrence: US)
  Receive Date: 20130604
  Receipt Date: 20130920
  Transmission Date: 20140515
  Serious: No
  Sender: FDA-Public Use
  Company Number: US-009507513-1306USA000400

PATIENT
  Age: 21 Year
  Sex: Female
  Weight: 114.74 kg

DRUGS (1)
  1. NEXPLANON [Suspect]
     Dosage: 1 ROD / 3 YEARS
     Route: 059
     Dates: start: 20120710, end: 20130912

REACTIONS (1)
  - Device breakage [Recovered/Resolved]
